FAERS Safety Report 8822761 (Version 4)
Quarter: 2012Q4

REPORT INFORMATION
  Report Type: 
  Country: US (occurrence: US)
  Receive Date: 20121003
  Receipt Date: 20121218
  Transmission Date: 20130627
  Serious: Yes (Hospitalization, Other)
  Sender: FDA-Public Use
  Company Number: US-VERTEX PHARMACEUTICAL INC.-2012-021011

PATIENT
  Age: 55 None
  Sex: Female
  Weight: 48 kg

DRUGS (4)
  1. VX-950 (TELAPREVIR) [Suspect]
     Indication: HEPATITIS C
     Dosage: 750 mg, tid
     Route: 048
     Dates: start: 2012, end: 20121018
  2. PEGASYS [Suspect]
     Indication: HEPATITIS C
     Dosage: 180 ?g, weekly
     Route: 058
     Dates: start: 2012
  3. RIBAVIRIN [Suspect]
     Indication: HEPATITIS C
     Dosage: 400 mg, bid
     Route: 048
     Dates: start: 2012
  4. PROCRIT                            /00928302/ [Concomitant]
     Indication: ANAEMIA
     Dosage: 40000 ut,weekly
     Route: 058
     Dates: start: 20121009

REACTIONS (7)
  - Pneumonia [Unknown]
  - Pyrexia [Unknown]
  - Dyspnoea [Unknown]
  - Oedema peripheral [Unknown]
  - Oral candidiasis [Unknown]
  - Pruritus [Unknown]
  - Administration related reaction [None]
